FAERS Safety Report 4486551-2 (Version None)
Quarter: 2004Q4

REPORT INFORMATION
  Report Type: 
  Country: None (occurrence: None)
  Receive Date: 20041021
  Receipt Date: 20041013
  Transmission Date: 20050328
  Serious: Yes (Other)
  Sender: FDA-Public Use
  Company Number: 2004238331CA

PATIENT
  Age: 35 Year
  Sex: Female
  Weight: 95.2 kg

DRUGS (2)
  1. DEPO-PROVERA [Suspect]
     Indication: CONTRACEPTION
     Dosage: SEE IMAGE
     Route: 030
     Dates: start: 20040426, end: 20040426
  2. DEPO-PROVERA [Suspect]
     Indication: CONTRACEPTION
     Dosage: SEE IMAGE
     Route: 030
     Dates: start: 20040710, end: 20040710

REACTIONS (6)
  - DYSPNOEA EXERTIONAL [None]
  - HEADACHE [None]
  - LIBIDO DECREASED [None]
  - METRORRHAGIA [None]
  - PAIN IN EXTREMITY [None]
  - WEIGHT INCREASED [None]
